FAERS Safety Report 4916217-3 (Version None)
Quarter: 2006Q1

REPORT INFORMATION
  Report Type: 
  Country: None (occurrence: None)
  Receive Date: 20060217
  Receipt Date: 20050929
  Transmission Date: 20060701
  Serious: Yes (Hospitalization, Disabling)
  Sender: FDA-Public Use
  Company Number: US-MERCK-0510USA00181

PATIENT
  Sex: Male
  Weight: 66 kg

DRUGS (2)
  1. VIOXX [Suspect]
     Indication: ARTHRALGIA
     Route: 048
     Dates: start: 20030801, end: 20030901
  2. VIOXX [Suspect]
     Indication: GOUT
     Route: 048
     Dates: start: 20030801, end: 20030901

REACTIONS (7)
  - BLOOD CHOLESTEROL INCREASED [None]
  - CEREBROVASCULAR ACCIDENT [None]
  - EUPHORIC MOOD [None]
  - HAEMATOCHEZIA [None]
  - HYPERTENSION [None]
  - TACHYCARDIA [None]
  - TOOTH DISORDER [None]
